FAERS Safety Report 23028698 (Version 1)
Quarter: 2023Q4

REPORT INFORMATION
  Report Type: Spontaneous
  Country: US (occurrence: None)
  Receive Date: 20231004
  Receipt Date: 20231004
  Transmission Date: 20240110
  Serious: Yes (Death)
  Sender: FDA-Public Use
  Company Number: None

PATIENT
  Age: 63 Year
  Sex: Male

DRUGS (1)
  1. TEMOZOLOMIDE [Suspect]
     Active Substance: TEMOZOLOMIDE
     Indication: Brain neoplasm malignant
     Dosage: TEMOZOLOMIDE 20MG DIRECTIONS: TAKE 1 CAPSULE BY MOUTH 1 TIME A DAY FOR 5 DAYS OF 28 DAY CYCLE. (TOT
     Route: 048
     Dates: start: 202305

REACTIONS (1)
  - Death [None]

NARRATIVE: CASE EVENT DATE: 20230819
